FAERS Safety Report 7180446-1 (Version None)
Quarter: 2010Q4

REPORT INFORMATION
  Report Type: 
  Country: None (occurrence: None)
  Receive Date: 20101221
  Receipt Date: 20101208
  Transmission Date: 20110411
  Serious: Yes (Other)
  Sender: FDA-Public Use
  Company Number: US-CELGENEUS-163-21880-10071059

PATIENT
  Age: 67 Year
  Sex: Male
  Weight: 91 kg

DRUGS (21)
  1. REVLIMID [Suspect]
     Route: 048
     Dates: start: 20100111
  2. REVLIMID [Suspect]
     Route: 048
     Dates: start: 20100628, end: 20100713
  3. BORTEZOMIB [Suspect]
     Route: 048
     Dates: start: 20100111, end: 20100617
  4. DEXAMETHASONE [Suspect]
     Route: 048
     Dates: start: 20100111
  5. DEXAMETHASONE [Suspect]
     Route: 048
     Dates: start: 20100607, end: 20100628
  6. DEXAMETHASONE [Suspect]
     Route: 048
     Dates: start: 20100628, end: 20100712
  7. ZOMETA [Suspect]
     Route: 065
     Dates: end: 20100601
  8. ASPIRIN [Concomitant]
     Route: 048
     Dates: start: 20100111
  9. FENTANYL-100 [Concomitant]
     Route: 062
  10. ADVAIR [Concomitant]
     Route: 055
  11. COMBIVENT [Concomitant]
     Route: 055
  12. LORAZEPAM [Concomitant]
     Route: 065
  13. MULTI-VITAMINS [Concomitant]
     Route: 065
  14. NYSTATIN [Concomitant]
     Route: 065
  15. FISH OIL [Concomitant]
     Route: 065
  16. PRILOSEC [Concomitant]
     Route: 065
  17. ONDANSETRON [Concomitant]
     Route: 065
  18. POTASSIUM CHLORIDE [Concomitant]
     Route: 065
  19. TRAZODONE HCL [Concomitant]
     Route: 065
  20. DYAZIDE [Concomitant]
     Route: 065
  21. VALTREX [Concomitant]
     Route: 065

REACTIONS (1)
  - OSTEONECROSIS OF JAW [None]
